FAERS Safety Report 15246627 (Version 1)
Quarter: 2018Q3

REPORT INFORMATION
  Report Type: Spontaneous
  Country: US (occurrence: US)
  Receive Date: 20180713
  Receipt Date: 20180713
  Transmission Date: 20181010
  Serious: No
  Sender: FDA-Public Use
  Company Number: None

PATIENT
  Age: 28 Year
  Sex: Female
  Weight: 69.75 kg

DRUGS (1)
  1. LAMOTRIGINE 100 MG TABLET [Suspect]
     Active Substance: LAMOTRIGINE
     Indication: BIPOLAR I DISORDER
     Dosage: ?          QUANTITY:0.5 TABLET(S);?
     Route: 048
     Dates: start: 20180617, end: 20180713

REACTIONS (15)
  - Rash pruritic [None]
  - Hyperaesthesia [None]
  - Stevens-Johnson syndrome [None]
  - Therapy change [None]
  - Rash [None]
  - Rash erythematous [None]
  - Eye swelling [None]
  - Ocular hyperaemia [None]
  - Oropharyngeal pain [None]
  - Conjunctivitis [None]
  - Malaise [None]
  - Lethargy [None]
  - Influenza like illness [None]
  - Seasonal allergy [None]
  - Dermal cyst [None]

NARRATIVE: CASE EVENT DATE: 20180712
